FAERS Safety Report 4383247-2 (Version None)
Quarter: 2004Q2

REPORT INFORMATION
  Report Type: 
  Country: None (occurrence: None)
  Receive Date: 20040618
  Receipt Date: 20040528
  Transmission Date: 20050107
  Serious: Yes (Hospitalization, Disabling, Other)
  Sender: FDA-Public Use
  Company Number: USA040568777

PATIENT
  Age: 71 Year
  Sex: Female

DRUGS (3)
  1. HUMULIN R [Suspect]
     Indication: DIABETES MELLITUS
  2. FORTEO [Suspect]
     Indication: DIABETES MELLITUS
     Dosage: 20 UG/1 DAY
     Dates: start: 20040423
  3. LANTUS [Concomitant]

REACTIONS (23)
  - ABDOMINAL PAIN UPPER [None]
  - ANKLE OPERATION [None]
  - ANOREXIA [None]
  - ARTHRALGIA [None]
  - BACK PAIN [None]
  - BLOOD ALKALINE PHOSPHATASE INCREASED [None]
  - BLOOD GLUCOSE INCREASED [None]
  - BODY TEMPERATURE INCREASED [None]
  - CHEST PAIN [None]
  - CHILLS [None]
  - COUGH [None]
  - DRY THROAT [None]
  - DYSPNOEA [None]
  - HEPATIC ENZYME INCREASED [None]
  - HYPOACUSIS [None]
  - INCREASED UPPER AIRWAY SECRETION [None]
  - LIMB OPERATION [None]
  - NAUSEA [None]
  - OSTEOPOROSIS [None]
  - PAIN IN EXTREMITY [None]
  - PHARYNGOLARYNGEAL PAIN [None]
  - RETCHING [None]
  - VISUAL ACUITY REDUCED [None]
